FAERS Safety Report 7207027-5 (Version None)
Quarter: 2011Q1

REPORT INFORMATION
  Report Type: 
  Country: None (occurrence: None)
  Receive Date: 20110103
  Receipt Date: 20101224
  Transmission Date: 20110831
  Serious: Yes (Hospitalization)
  Sender: FDA-Public Use
  Company Number: B0684383B

PATIENT
  Sex: Female
  Weight: 115.8 kg

DRUGS (2)
  1. DOCETAXEL [Suspect]
     Dosage: 170MG EVERY 3 WEEKS
     Route: 042
     Dates: start: 20100826
  2. LAPATINIB [Suspect]
     Dosage: 1250MG PER DAY
     Route: 048
     Dates: start: 20100826

REACTIONS (3)
  - MALAISE [None]
  - PYREXIA [None]
  - COUGH [None]
